FAERS Safety Report 8780463 (Version 1)
Quarter: 2012Q4

REPORT INFORMATION
  Report Type: Spontaneous
  Country: US (occurrence: None)
  Receive Date: 20120906
  Receipt Date: 20120906
  Transmission Date: 20130627
  Serious: Yes (Disabling, Other)
  Sender: FDA-Public Use
  Company Number: None

PATIENT
  Age: 23 Year
  Sex: Female
  Weight: 86.18 kg

DRUGS (2)
  1. MIFEPREX [Suspect]
     Indication: PREGNANCY
     Route: 060
     Dates: start: 20110106, end: 20110106
  2. MISOPROSTOL [Suspect]
     Route: 060
     Dates: start: 20110107, end: 20110107

REACTIONS (9)
  - Haemorrhage [None]
  - Vomiting [None]
  - Delusion [None]
  - Hypoaesthesia [None]
  - Impaired work ability [None]
  - Dizziness [None]
  - Malaise [None]
  - Ovarian cyst [None]
  - Retained products of conception [None]
